FAERS Safety Report 23394214 (Version 1)
Quarter: 2024Q1

REPORT INFORMATION
  Report Type: Spontaneous
  Country: FR (occurrence: FR)
  Receive Date: 20240111
  Receipt Date: 20240111
  Transmission Date: 20240409
  Serious: Yes (Hospitalization)
  Sender: FDA-Public Use
  Company Number: None

PATIENT
  Age: 49 Year
  Sex: Female

DRUGS (2)
  1. ADALIMUMAB [Suspect]
     Active Substance: ADALIMUMAB\ISOPROPYL ALCOHOL
     Indication: Palmoplantar pustulosis
     Route: 065
     Dates: start: 202307, end: 2023
  2. METHOTREXATE [Suspect]
     Active Substance: METHOTREXATE
     Indication: Palmoplantar pustulosis
     Route: 065
     Dates: start: 2017, end: 2023

REACTIONS (1)
  - Device loosening [Not Recovered/Not Resolved]

NARRATIVE: CASE EVENT DATE: 20231201
